FAERS Safety Report 24803111 (Version 2)
Quarter: 2025Q1

REPORT INFORMATION
  Report Type: Spontaneous
  Country: PL (occurrence: PL)
  Receive Date: 20250103
  Receipt Date: 20250206
  Transmission Date: 20250409
  Serious: Yes (Other)
  Sender: ROCHE
  Company Number: PL-ROCHE-10000170271

PATIENT

DRUGS (1)
  1. VABYSMO [Suspect]
     Active Substance: FARICIMAB-SVOA
     Indication: Polypoidal choroidal vasculopathy
     Route: 065

REACTIONS (2)
  - Off label use [Unknown]
  - Detachment of retinal pigment epithelium [Unknown]
